FAERS Safety Report 10843486 (Version 1)
Quarter: 2015Q1

REPORT INFORMATION
  Report Type: Spontaneous
  Country: US (occurrence: US)
  Receive Date: 20150220
  Receipt Date: 20150220
  Transmission Date: 20150721
  Serious: No
  Sender: FDA-Public Use
  Company Number: US-ABBVIE-14P-163-1256839-00

PATIENT

DRUGS (1)
  1. HUMIRA [Suspect]
     Active Substance: ADALIMUMAB
     Indication: PRODUCT USED FOR UNKNOWN INDICATION

REACTIONS (7)
  - Feeling abnormal [Unknown]
  - Headache [Unknown]
  - Fatigue [Unknown]
  - Fear of injection [Unknown]
  - Injection site pain [Unknown]
  - Feeling jittery [Unknown]
  - Anxiety [Unknown]
